FAERS Safety Report 5092680-5 (Version None)
Quarter: 2006Q3

REPORT INFORMATION
  Report Type: 
  Country: None (occurrence: None)
  Receive Date: 20060830
  Receipt Date: 20060821
  Transmission Date: 20061208
  Serious: Yes (Death, Life-Threatening, Hospitalization)
  Sender: FDA-Public Use
  Company Number: US-JNJFOC-20060703088

PATIENT
  Sex: Male
  Weight: 80.47 kg

DRUGS (12)
  1. YONDELIS [Suspect]
     Route: 042
  2. YONDELIS [Suspect]
     Indication: SARCOMA
     Route: 042
  3. DOXIL [Suspect]
     Route: 042
  4. DOXIL [Suspect]
     Indication: SARCOMA
     Route: 042
  5. GLUCOPHAGE [Concomitant]
  6. LEVOTHYROXINE SODIUM [Concomitant]
  7. LIPITOR [Concomitant]
  8. MOBIC [Concomitant]
  9. PREVACID [Concomitant]
  10. TUM [Concomitant]
  11. ASCORBIC ACID [Concomitant]
  12. VITAMIN E [Concomitant]

REACTIONS (2)
  - ACUTE RESPIRATORY DISTRESS SYNDROME [None]
  - RENAL FAILURE ACUTE [None]
